FAERS Safety Report 17807146 (Version 1)
Quarter: 2020Q2

REPORT INFORMATION
  Report Type: Spontaneous
  Country: DE (occurrence: DE)
  Receive Date: 20200520
  Receipt Date: 20200520
  Transmission Date: 20200714
  Serious: Yes (Life-Threatening, Hospitalization, Other)
  Sender: FDA-Public Use
  Company Number: DE-MYLANLABS-2020M1047540

PATIENT
  Age: 55 Year
  Sex: Male

DRUGS (3)
  1. NIMODIPINE. [Concomitant]
     Active Substance: NIMODIPINE
     Indication: PROPHYLAXIS
     Dosage: 6 ? 60 MG/D
     Route: 065
  2. URAPIDIL [Concomitant]
     Active Substance: URAPIDIL
     Indication: HYPERTENSION
     Dosage: UNK
     Route: 042
  3. SILDENAFIL. [Suspect]
     Active Substance: SILDENAFIL
     Indication: ERECTILE DYSFUNCTION
     Dosage: 200 MG, SINGLE
     Route: 065

REACTIONS (5)
  - Self-medication [Recovered/Resolved]
  - Vomiting [Recovered/Resolved]
  - Intentional overdose [Recovered/Resolved]
  - Subarachnoid haemorrhage [Recovered/Resolved]
  - Thunderclap headache [Recovered/Resolved]
